FAERS Safety Report 16341055 (Version 1)
Quarter: 2019Q2

REPORT INFORMATION
  Report Type: Spontaneous
  Country: NL (occurrence: NL)
  Receive Date: 20190522
  Receipt Date: 20190522
  Transmission Date: 20190711
  Serious: Yes (Death, Hospitalization)
  Sender: FDA-Public Use
  Company Number: NL-TEVA-2019-NL-1052271

PATIENT
  Age: 90 Year
  Sex: Male
  Weight: 70 kg

DRUGS (9)
  1. LISINOPRIL. [Concomitant]
     Active Substance: LISINOPRIL
  2. DOXYCYCLINE. [Concomitant]
     Active Substance: DOXYCYCLINE
  3. RIVASTIGMINE PLEISTER, 4,6 MG (MILLIGRAM) PER 24 UUR [Suspect]
     Active Substance: RIVASTIGMINE
     Indication: PARKINSONISM
     Dosage: 1D1
     Dates: start: 201802, end: 20180314
  4. LEVODOPA/BENSERAZIDE CAPSULE  MGA 100/25MG [Concomitant]
     Dosage: 2 X 1 PIECE PER DAY
  5. GLICLAZIDE [Concomitant]
     Active Substance: GLICLAZIDE
  6. RIVASTIGMINE PLEISTER, 4,6 MG (MILLIGRAM) PER 24 UUR [Suspect]
     Active Substance: RIVASTIGMINE
     Indication: DEMENTIA
  7. LEVODOPA/BENSERAZIDE CAPSULE  50/12,5MG [Concomitant]
     Dosage: 2 X 1 PIECE PER DAY
  8. METFORMINE [Concomitant]
     Active Substance: METFORMIN HYDROCHLORIDE
  9. DANIFENACINE [Concomitant]

REACTIONS (3)
  - Incontinence [Unknown]
  - Acute kidney injury [Fatal]
  - Condition aggravated [Unknown]

NARRATIVE: CASE EVENT DATE: 201804
